FAERS Safety Report 4760376-2 (Version None)
Quarter: 2005Q3

REPORT INFORMATION
  Report Type: 
  Country: None (occurrence: None)
  Receive Date: 20050829
  Receipt Date: 20041221
  Transmission Date: 20060218
  Serious: Yes (Other)
  Sender: FDA-Public Use
  Company Number: A03200404313

PATIENT
  Sex: Male

DRUGS (4)
  1. AMBIEN [Suspect]
     Indication: INSOMNIA
     Dosage: 10 MG PRN - ORAL
     Route: 048
     Dates: start: 20030101, end: 20041001
  2. HYDROCODONE BITARTRATE + ACETAMINOPHEN [Concomitant]
  3. FENTANYL [Concomitant]
  4. METOPROLOL SUCCINATE [Concomitant]

REACTIONS (4)
  - DISORIENTATION [None]
  - HALLUCINATION [None]
  - IMPAIRED DRIVING ABILITY [None]
  - LOSS OF CONSCIOUSNESS [None]
